FAERS Safety Report 17951969 (Version 1)
Quarter: 2020Q2

REPORT INFORMATION
  Report Type: Spontaneous
  Country: US (occurrence: US)
  Receive Date: 20200626
  Receipt Date: 20200626
  Transmission Date: 20200714
  Serious: No
  Sender: FDA-Public Use
  Company Number: US-ACELRX PHARMACEUTICALS, INC-ACEL20200045

PATIENT
  Sex: Female

DRUGS (5)
  1. DSUVIA [Suspect]
     Active Substance: SUFENTANIL
     Indication: PROCEDURAL PAIN
     Dosage: 30 MCG ONCE 45 MINUTES PRIOR TO SURGERY
     Route: 060
     Dates: start: 20200616, end: 20200616
  2. PROPOFOL. [Concomitant]
     Active Substance: PROPOFOL
     Indication: INDUCTION OF ANAESTHESIA
     Dosage: UNKNOWN
     Route: 042
  3. KETAMINE [Suspect]
     Active Substance: KETAMINE
     Indication: INDUCTION OF ANAESTHESIA
     Dosage: 50 MG
     Route: 040
  4. KETAMINE [Suspect]
     Active Substance: KETAMINE
     Dosage: 50 MG
     Route: 040
  5. SEVOFLURANE. [Concomitant]
     Active Substance: SEVOFLURANE
     Indication: INDUCTION OF ANAESTHESIA
     Dosage: UNKNOWN
     Route: 042

REACTIONS (3)
  - Laryngospasm [Recovered/Resolved]
  - Tidal volume decreased [Recovered/Resolved]
  - Reversal of opiate activity [None]

NARRATIVE: CASE EVENT DATE: 20200616
